FAERS Safety Report 17546106 (Version 1)
Quarter: 2020Q1

REPORT INFORMATION
  Report Type: Spontaneous
  Country: US (occurrence: US)
  Receive Date: 20200316
  Receipt Date: 20200316
  Transmission Date: 20200409
  Serious: No
  Sender: FDA-Public Use
  Company Number: US-009507513-2003USA003365

PATIENT
  Sex: Female

DRUGS (1)
  1. CUBICIN [Suspect]
     Active Substance: DAPTOMYCIN
     Dosage: UNK (QUANTITY: 167)

REACTIONS (2)
  - Product storage error [Unknown]
  - Circumstance or information capable of leading to medication error [Unknown]
